FAERS Safety Report 18629961 (Version 2)
Quarter: 2020Q4

REPORT INFORMATION
  Report Type: Spontaneous
  Country: US (occurrence: US)
  Receive Date: 20201217
  Receipt Date: 20201218
  Transmission Date: 20210114
  Serious: Yes (Other)
  Sender: FDA-Public Use
  Company Number: US-PFIZER INC-2020493749

PATIENT
  Age: 61 Year
  Sex: Female
  Weight: 61.23 kg

DRUGS (2)
  1. CECLOR [Suspect]
     Active Substance: CEFACLOR
     Dosage: UNK
  2. DIFLUCAN [Suspect]
     Active Substance: FLUCONAZOLE
     Dosage: UNK

REACTIONS (3)
  - Erythema multiforme [Unknown]
  - Pruritus [Unknown]
  - Drug hypersensitivity [Unknown]
